FAERS Safety Report 8318732 (Version 2)
Quarter: 2013Q2

REPORT INFORMATION
  Report Type: Spontaneous
  Country: US (occurrence: US)
  Receive Date: 20120103
  Receipt Date: 20130523
  Transmission Date: 20140414
  Serious: Yes (Life-Threatening, Congenital Anomaly, Other)
  Sender: FDA-Public Use
  Company Number: US-PFIZER INC-2011288532

PATIENT
  Sex: Male

DRUGS (5)
  1. ZOLOFT [Suspect]
     Dosage: 50 MG TABLETS HALF TABLET 1X/DAY
     Route: 064
     Dates: start: 20060203
  2. ZOLOFT [Suspect]
     Dosage: 50 MG TABLETS ONE TABLET 1X/DAY
     Route: 064
     Dates: start: 20060327
  3. SERTRALINE [Concomitant]
     Dosage: 50 MG, TABLETS HALF TABLET 1X/DAY
     Route: 064
     Dates: start: 20070117
  4. NATELLE EZ [Concomitant]
     Dosage: 1 DF (TABLET), 1X/DAY
     Route: 064
     Dates: start: 20070125
  5. VINATE AZ [Concomitant]
     Dosage: 1 DF (TABLET), 1X/DAY
     Route: 064
     Dates: start: 20070320

REACTIONS (3)
  - Maternal exposure timing unspecified [Unknown]
  - Subvalvular aortic stenosis [Unknown]
  - Congenital anomaly [Unknown]
